FAERS Safety Report 5182016-3 (Version None)
Quarter: 2006Q4

REPORT INFORMATION
  Report Type: 
  Country: None (occurrence: None)
  Receive Date: 20061220
  Receipt Date: 20060419
  Transmission Date: 20070319
  Serious: No
  Sender: FDA-Public Use
  Company Number: US-GLAXOSMITHKLINE-A0602384A

PATIENT
  Age: 63 Year
  Sex: Female

DRUGS (3)
  1. COMMIT [Suspect]
  2. COMMIT [Suspect]
  3. NICODERM 21MG (RX) [Suspect]

REACTIONS (3)
  - DRUG INEFFECTIVE [None]
  - HICCUPS [None]
  - NICOTINE DEPENDENCE [None]
